FAERS Safety Report 17778536 (Version 2)
Quarter: 2020Q2

REPORT INFORMATION
  Report Type: Spontaneous
  Country: FR (occurrence: FR)
  Receive Date: 20200514
  Receipt Date: 20200520
  Transmission Date: 20200714
  Serious: Yes (Hospitalization, Other)
  Sender: FDA-Public Use
  Company Number: FR-AUROBINDO-AUR-APL-2020-022483

PATIENT
  Age: 66 Year
  Sex: Female

DRUGS (18)
  1. IRBESARTAN BIOGARAN [Suspect]
     Active Substance: IRBESARTAN
     Dosage: 75 MILLIGRAM, ONCE A DAY
     Route: 048
     Dates: start: 2014, end: 2014
  2. IRBESARTAN BIOGARAN [Suspect]
     Active Substance: IRBESARTAN
     Dosage: 1 DOSAGE FORM, ONCE A DAY
     Route: 048
     Dates: start: 2016
  3. LERCAN [Concomitant]
     Active Substance: LERCANIDIPINE
     Indication: HYPERTENSION
     Dosage: UNK
     Route: 048
     Dates: start: 201503, end: 201510
  4. LEXOMIL [Concomitant]
     Active Substance: BROMAZEPAM
     Indication: ANXIETY
     Dosage: 0.5 MILLIGRAM, ONCE A DAY
     Route: 048
  5. LOXEN [Concomitant]
     Indication: HYPERTENSION
     Dosage: UNK
     Route: 065
     Dates: start: 2014
  6. KARDEGIC [Concomitant]
     Active Substance: ASPIRIN DL-LYSINE
     Indication: ANTICOAGULANT THERAPY
     Dosage: 1 DOSAGE FORM, ONCE A DAY
     Route: 048
     Dates: start: 2014
  7. BISOPROLOL FILM-COATED TABLETS [Suspect]
     Active Substance: BISOPROLOL
     Indication: PRODUCT USED FOR UNKNOWN INDICATION
     Dosage: UNK
     Route: 048
     Dates: start: 2014
  8. IRBESARTAN BIOGARAN [Suspect]
     Active Substance: IRBESARTAN
     Dosage: 75 MILLIGRAM
     Route: 048
     Dates: start: 2016
  9. IRBESARTAN BIOGARAN [Suspect]
     Active Substance: IRBESARTAN
     Dosage: 1 DOSAGE FORM, ONCE A DAY
     Route: 048
     Dates: start: 2014, end: 2016
  10. KARDEGIC [Concomitant]
     Active Substance: ASPIRIN DL-LYSINE
     Dosage: 75 MILLIGRAM, ONCE A DAY
     Route: 065
     Dates: start: 2014
  11. PROGESTERONE. [Concomitant]
     Active Substance: PROGESTERONE
     Indication: PRODUCT USED FOR UNKNOWN INDICATION
     Dosage: 1 DOSAGE FORM, ONCE A DAY
     Route: 065
  12. FLECAINIDE ACETATE. [Concomitant]
     Active Substance: FLECAINIDE ACETATE
     Indication: ARRHYTHMIA
     Dosage: 1 DOSAGE FORM, ONCE A DAY
     Route: 048
     Dates: start: 2014
  13. IRBESARTAN BIOGARAN [Suspect]
     Active Substance: IRBESARTAN
     Indication: HYPERTENSION
     Dosage: 1 DOSAGE FORM, ONCE A DAY
     Route: 048
     Dates: start: 2014, end: 2014
  14. IRBESARTAN BIOGARAN [Suspect]
     Active Substance: IRBESARTAN
     Dosage: 150 MILLIGRAM, ONCE A DAY
     Route: 048
     Dates: start: 2014, end: 2016
  15. MONOTILDIEM [Suspect]
     Active Substance: DILTIAZEM
     Indication: PRODUCT USED FOR UNKNOWN INDICATION
     Dosage: UNK
     Route: 065
  16. PROGESTERONE. [Concomitant]
     Active Substance: PROGESTERONE
     Dosage: 4 DOSAGE FORM, ONCE A DAY
     Route: 065
  17. FLECAINE [Concomitant]
     Active Substance: FLECAINIDE
     Indication: ARRHYTHMIA
     Dosage: 150 MILLIGRAM, ONCE A DAY
     Route: 065
     Dates: start: 2014
  18. CORDARONE [Concomitant]
     Active Substance: AMIODARONE HYDROCHLORIDE
     Indication: ARRHYTHMIA
     Dosage: UNK
     Route: 065
     Dates: start: 2014

REACTIONS (9)
  - Treatment noncompliance [Unknown]
  - Fatigue [Not Recovered/Not Resolved]
  - Intentional product misuse [Unknown]
  - Arrhythmia [Not Recovered/Not Resolved]
  - Hypotension [Recovered/Resolved]
  - Blood pressure increased [Recovered/Resolved]
  - Tachycardia [Not Recovered/Not Resolved]
  - Therapy cessation [Unknown]
  - Drug ineffective [Unknown]

NARRATIVE: CASE EVENT DATE: 2014
